FAERS Safety Report 25934779 (Version 1)
Quarter: 2025Q4

REPORT INFORMATION
  Report Type: Spontaneous
  Country: EU (occurrence: EU)
  Receive Date: 20251017
  Receipt Date: 20251017
  Transmission Date: 20260118
  Serious: Yes (Other)
  Sender: RANBAXY
  Company Number: EU-BFARM-25002449

PATIENT
  Sex: Female

DRUGS (2)
  1. SERTRALINE [Interacting]
     Active Substance: SERTRALINE HYDROCHLORIDE
     Indication: Depression
     Dosage: 75 MILLIGRAM
     Route: 065
     Dates: start: 201410
  2. LEVOTHYROXINE SODIUM [Interacting]
     Active Substance: LEVOTHYROXINE SODIUM
     Indication: Autoimmune thyroiditis
     Dosage: 150 MICROGRAM, DAILY
     Route: 048

REACTIONS (9)
  - Fatigue [Recovered/Resolved]
  - Fatigue [Recovered/Resolved]
  - Apathy [Recovered/Resolved]
  - Blood thyroid stimulating hormone increased [Recovered/Resolved]
  - Drug interaction [Unknown]
  - Product label issue [Unknown]
  - Somnolence [Recovered/Resolved]
  - Asthenia [Recovered/Resolved]
  - Hypothyroidism [Recovered/Resolved]

NARRATIVE: CASE EVENT DATE: 20141201
